FAERS Safety Report 20953713 (Version 3)
Quarter: 2022Q2

REPORT INFORMATION
  Report Type: Report from Study
  Country: US (occurrence: US)
  Receive Date: 20220613
  Receipt Date: 20220623
  Transmission Date: 20220721
  Serious: Yes (Other)
  Sender: FDA-Public Use
  Company Number: US-ABBVIE-22K-163-4430289-00

PATIENT
  Age: 68 Year
  Sex: Male
  Weight: 77.180 kg

DRUGS (4)
  1. DUOPA [Suspect]
     Active Substance: CARBIDOPA\LEVODOPA
     Indication: Product used for unknown indication
     Route: 050
     Dates: start: 20220601
  2. DUOPA [Suspect]
     Active Substance: CARBIDOPA\LEVODOPA
     Route: 050
     Dates: start: 20220606
  3. RYTARY [Concomitant]
     Active Substance: CARBIDOPA\LEVODOPA
     Indication: Parkinson^s disease
  4. NUPLAZID [Concomitant]
     Active Substance: PIMAVANSERIN TARTRATE
     Indication: Parkinson^s disease psychosis

REACTIONS (8)
  - Dyspnoea [Unknown]
  - Complication associated with device [Not Recovered/Not Resolved]
  - Pain [Unknown]
  - Stoma site pain [Unknown]
  - Stoma site discharge [Recovering/Resolving]
  - Abdominal pain [Unknown]
  - Stoma site erythema [Unknown]
  - Adverse event [Recovering/Resolving]

NARRATIVE: CASE EVENT DATE: 20220601
